FAERS Safety Report 8768174 (Version 6)
Quarter: 2012Q4

REPORT INFORMATION
  Report Type: 
  Country: US (occurrence: US)
  Receive Date: 20120904
  Receipt Date: 20121207
  Transmission Date: 20130627
  Serious: Yes (Hospitalization, Other)
  Sender: FDA-Public Use
  Company Number: US-009507513-1203USA00786

PATIENT

DRUGS (6)
  1. FOSAMAX [Suspect]
     Indication: BONE LOSS
     Dosage: 10 mg, UNK
     Route: 048
     Dates: start: 199511, end: 2001
  2. FOSAMAX [Suspect]
     Indication: OSTEOPOROSIS
     Dosage: 70 mg, qw
     Route: 048
     Dates: start: 2001, end: 200901
  3. FOSAMAX [Suspect]
     Indication: BONE LOSS
     Dosage: 70 mg, UNK
     Route: 048
     Dates: start: 200904, end: 20110320
  4. FOSAMAX [Suspect]
     Indication: OSTEOPOROSIS
  5. FOSAMAX PLUS D [Suspect]
     Indication: BONE LOSS
     Dosage: 70 mg/5600
     Route: 048
  6. FOSAMAX PLUS D [Suspect]
     Indication: OSTEOPOROSIS

REACTIONS (35)
  - Femur fracture [Unknown]
  - Intramedullary rod insertion [Unknown]
  - Hodgkin^s disease [Unknown]
  - Pancytopenia [Unknown]
  - Obstructive airways disorder [Unknown]
  - Laboratory test [Unknown]
  - Congenital musculoskeletal anomaly [Unknown]
  - Bone cancer [Unknown]
  - Low turnover osteopathy [Unknown]
  - Tooth loss [Unknown]
  - Tooth extraction [Unknown]
  - Loose tooth [Unknown]
  - Loose tooth [Unknown]
  - Tooth extraction [Unknown]
  - Loose tooth [Unknown]
  - Calcium deficiency [Unknown]
  - Hypertension [Unknown]
  - Adverse event [Unknown]
  - Loose tooth [Unknown]
  - Dental pulp disorder [Unknown]
  - Endodontic procedure [Unknown]
  - Toothache [Unknown]
  - Tooth disorder [Unknown]
  - Oral mucosal blistering [Unknown]
  - Rheumatoid arthritis [Not Recovered/Not Resolved]
  - Chronic obstructive pulmonary disease [Unknown]
  - Spinal compression fracture [Unknown]
  - Lymphoplasmacytoid lymphoma/immunocytoma [Unknown]
  - Hypertension [Unknown]
  - Restless legs syndrome [Unknown]
  - Constipation [Unknown]
  - Hysterectomy [Unknown]
  - Anaemia [Unknown]
  - Chest discomfort [Unknown]
  - Hyponatraemia [Unknown]
